FAERS Safety Report 11235728 (Version 3)
Quarter: 2016Q3

REPORT INFORMATION
  Report Type: Spontaneous
  Country: AU (occurrence: AU)
  Receive Date: 20150702
  Receipt Date: 20160724
  Transmission Date: 20161109
  Serious: Yes (Hospitalization, Other)
  Sender: FDA-Public Use
  Company Number: AU-UCBSA-2015021350

PATIENT
  Age: 43 Year
  Sex: Female

DRUGS (7)
  1. ALCOHOL. [Concomitant]
     Active Substance: ALCOHOL
     Indication: ASTHMA
     Dosage: UNKNOWN DOSE
  2. LEVETIRACETAM. [Suspect]
     Active Substance: LEVETIRACETAM
     Indication: EPILEPSY
     Dosage: UNKNOWN DOSE
  3. BECLOMETHASONE [Concomitant]
     Active Substance: BECLOMETHASONE
     Indication: ASTHMA
     Dosage: UNKNOWN DOSE
  4. CODEINE PHOSPHATE W/PARACETAMOL [Suspect]
     Active Substance: ACETAMINOPHEN\CODEINE PHOSPHATE
     Indication: PRODUCT USED FOR UNKNOWN INDICATION
     Dosage: 10 G/600 MG PARACETAMOL/CODEINE COMBINATION PRODUCT
  5. LEVETIRACETAM. [Suspect]
     Active Substance: LEVETIRACETAM
     Dosage: 60-80 (1000MG TABLETS OF LEVETIRACETAM)
  6. CODEINE PHOSPHATE W/PARACETAMOL [Suspect]
     Active Substance: ACETAMINOPHEN\CODEINE PHOSPHATE
     Dosage: 500 MG/30 MG (20 TABLETS)
  7. SALBUTAMOL [Concomitant]
     Active Substance: ALBUTEROL
     Indication: ASTHMA
     Dosage: UNKNOWN DOSE

REACTIONS (6)
  - Hypotension [Recovered/Resolved]
  - Oliguria [Recovered/Resolved]
  - Hypoglycaemia [Recovered/Resolved]
  - Overdose [Unknown]
  - Off label use [Unknown]
  - Sinus bradycardia [Recovered/Resolved]

NARRATIVE: CASE EVENT DATE: 201404
